FAERS Safety Report 8894597 (Version 2)
Quarter: 2013Q2

REPORT INFORMATION
  Report Type: Spontaneous
  Country: US (occurrence: US)
  Receive Date: 20121108
  Receipt Date: 20130524
  Transmission Date: 20140414
  Serious: No
  Sender: FDA-Public Use
  Company Number: US-009507513-1211USA001079

PATIENT
  Sex: Female

DRUGS (1)
  1. SINGULAIR [Suspect]
     Indication: RHINITIS
     Dosage: UNK
     Route: 048
     Dates: start: 2011, end: 201210

REACTIONS (5)
  - Drug ineffective [Unknown]
  - Discomfort [Unknown]
  - Eye pruritus [Unknown]
  - Rhinorrhoea [Unknown]
  - Lacrimation increased [Not Recovered/Not Resolved]
